FAERS Safety Report 21683092 (Version 1)
Quarter: 2022Q4

REPORT INFORMATION
  Report Type: Spontaneous
  Country: BR (occurrence: BR)
  Receive Date: 20221205
  Receipt Date: 20221205
  Transmission Date: 20230112
  Serious: Yes (Other)
  Sender: FDA-Public Use
  Company Number: BR-GLAXOSMITHKLINE-BR2022AMR177515

PATIENT

DRUGS (1)
  1. FLUTICASONE FUROATE [Suspect]
     Active Substance: FLUTICASONE FUROATE
     Indication: Rhinitis
     Dosage: 1 DF, QD 27.5MCG X 120 DOSES
     Dates: start: 20221125

REACTIONS (18)
  - Breast cancer [Unknown]
  - Immunodeficiency [Unknown]
  - Rhinitis [Unknown]
  - Pharyngeal disorder [Unknown]
  - Pharyngitis [Unknown]
  - Laryngitis [Unknown]
  - Condition aggravated [Unknown]
  - Arthritis [Unknown]
  - Asthenia [Unknown]
  - Hypersensitivity [Unknown]
  - Pain [Unknown]
  - Ear disorder [Unknown]
  - Lacrimation increased [Unknown]
  - Exposure via eye contact [Unknown]
  - Accidental exposure to product [Unknown]
  - Product use in unapproved indication [Unknown]
  - Wrong technique in product usage process [Unknown]
  - Incorrect dose administered [Unknown]
